FAERS Safety Report 6615076-0 (Version None)
Quarter: 2010Q1

REPORT INFORMATION
  Report Type: 
  Country: None (occurrence: None)
  Receive Date: 20100305
  Receipt Date: 20090518
  Transmission Date: 20100710
  Serious: No
  Sender: FDA-Public Use
  Company Number: DE-BAYER-200918304GPV

PATIENT
  Sex: Female

DRUGS (1)
  1. BETAFERON [Suspect]
     Indication: DRUG USE FOR UNKNOWN INDICATION

REACTIONS (1)
  - AUTOIMMUNE THROMBOCYTOPENIA [None]
